FAERS Safety Report 21457600 (Version 3)
Quarter: 2022Q4

REPORT INFORMATION
  Report Type: Report from Study
  Country: US (occurrence: US)
  Receive Date: 20221014
  Receipt Date: 20221109
  Transmission Date: 20230112
  Serious: Yes (Other)
  Sender: FDA-Public Use
  Company Number: None

PATIENT
  Age: 71 Year
  Sex: Female
  Weight: 113.85 kg

DRUGS (42)
  1. REVLIMID [Suspect]
     Active Substance: LENALIDOMIDE
     Indication: Plasma cell myeloma
     Dosage: FREQUENCY: ONCE A DAY FOR 21 DAYS THEN OFF 7 DAYS
     Route: 048
  2. REVLIMID [Suspect]
     Active Substance: LENALIDOMIDE
     Dosage: 21 OUT OF 28DAYS, TAKE 1 CAPSULE DAILY FOR 21 DAYS, THEN 1 WEEK OFF?FIRST SHIP DATE FROM ACCREDO:10-
     Route: 048
     Dates: start: 20220212
  3. FUROSEMIDE [Concomitant]
     Active Substance: FUROSEMIDE
     Indication: Product used for unknown indication
     Dosage: FUROSEMIDE 20 MG TABLET
     Route: 065
  4. LYRICA [Concomitant]
     Active Substance: PREGABALIN
     Indication: Product used for unknown indication
     Dosage: LYRICA 100 MG CAPSULE
     Route: 065
  5. ATORVASTATIN [Concomitant]
     Active Substance: ATORVASTATIN
     Indication: Product used for unknown indication
     Dosage: ATORVASTATIN CALCIUM 10 MG TABLET
     Route: 065
  6. HYDROXYZINE HYDROCHLORIDE [Concomitant]
     Active Substance: HYDROXYZINE HYDROCHLORIDE
     Indication: Product used for unknown indication
     Dosage: HYDROXYZINE HCL 10 MG TABLET
     Route: 065
  7. TRELEGY ELLIPTA [Concomitant]
     Active Substance: FLUTICASONE FUROATE\UMECLIDINIUM BROMIDE\VILANTEROL TRIFENATATE
     Indication: Product used for unknown indication
     Dosage: TRELEGY ELLIPTA 100-62.5 BLST W/DEV
     Route: 065
  8. METOPROLOL SUCCINATE [Concomitant]
     Active Substance: METOPROLOL SUCCINATE
     Indication: Product used for unknown indication
     Route: 065
  9. ALBUTEROL SULFATE [Concomitant]
     Active Substance: ALBUTEROL SULFATE
     Indication: Product used for unknown indication
     Route: 065
  10. LEVOTHYROXINE [Concomitant]
     Active Substance: LEVOTHYROXINE
     Indication: Product used for unknown indication
     Dosage: LEVOTHYROXINE 13 MCG CAPSULE
     Route: 065
  11. LEVETIRACETAM [Concomitant]
     Active Substance: LEVETIRACETAM
     Indication: Product used for unknown indication
     Dosage: LEVETIRACETAM 750 MG TABLET
     Route: 065
  12. LEVETIRACETAM [Concomitant]
     Active Substance: LEVETIRACETAM
     Dosage: LEVETIRACETAM 1000 MG TABLET
     Route: 065
  13. ONDANSETRON HCL [Concomitant]
     Active Substance: ONDANSETRON HYDROCHLORIDE
     Indication: Product used for unknown indication
     Dosage: ONDANSETRON HCL 4 MG TABLET
     Route: 065
  14. LISINOPRIL [Concomitant]
     Active Substance: LISINOPRIL
     Indication: Product used for unknown indication
     Dosage: LISINOPRIL 10 MG TABLET
     Route: 065
  15. AMLODIPINE BESYLATE [Concomitant]
     Active Substance: AMLODIPINE BESYLATE
     Indication: Product used for unknown indication
     Dosage: AMLODIPINE BESYLATE 10 MG TABLET
     Route: 065
  16. BIOGLAN HEALTHY KIDS MULTIVITAMIN GUMMIES [Concomitant]
     Indication: Product used for unknown indication
     Route: 065
  17. BENADRYL [Concomitant]
     Active Substance: DIPHENHYDRAMINE HYDROCHLORIDE
     Indication: Product used for unknown indication
     Dosage: BENADRYL 25 MG CAPSULE
     Route: 065
  18. SODIUM BICARBONATE [Concomitant]
     Active Substance: SODIUM BICARBONATE
     Indication: Product used for unknown indication
     Dosage: SODIUM BICARBONATE 325 MG TABLET
     Route: 065
  19. FISH OIL [Concomitant]
     Active Substance: FISH OIL
     Indication: Product used for unknown indication
     Dosage: FISH OIL 600-1200MG CAPSULE DR, FISH OIL 100-150 MG CAPSULE
     Route: 065
  20. TOUJEO [Concomitant]
     Active Substance: INSULIN GLARGINE
     Indication: Product used for unknown indication
     Dosage: TOUJEO SOLOSTAR 300/ML INSULN PEN
     Route: 065
  21. MORPHINE SULFATE [Concomitant]
     Active Substance: MORPHINE SULFATE
     Indication: Product used for unknown indication
     Dosage: MORPHINE SULFATE 15 MG TABLET
     Route: 065
  22. OZEMPIC [Concomitant]
     Active Substance: SEMAGLUTIDE
     Indication: Product used for unknown indication
     Dosage: OZEMPIC 2MG/ 0.75ML PEN INJCTR?OZEMPIC 0.25 OR .5 PEN INJCTR
     Route: 065
  23. ASPIRIN [Concomitant]
     Active Substance: ASPIRIN
     Indication: Product used for unknown indication
     Route: 065
  24. ASPIRIN [Concomitant]
     Active Substance: ASPIRIN
     Route: 065
  25. FARXIGA [Concomitant]
     Active Substance: DAPAGLIFLOZIN PROPANEDIOL
     Indication: Product used for unknown indication
     Route: 065
  26. ZINC [Concomitant]
     Active Substance: ZINC
     Indication: Product used for unknown indication
     Dosage: ZINC 50 MG TABLET, ZINC-15 66 MG TABLET
     Route: 065
  27. MAGNESIUM [Concomitant]
     Active Substance: MAGNESIUM
     Indication: Product used for unknown indication
     Dosage: MAGNESIUM 400 MG CAPSULE
     Route: 065
  28. MAGNESIUM [Concomitant]
     Active Substance: MAGNESIUM
     Dosage: MAGNESIUM 400 MG CAPSULE, MAGNESIUM 100 MG TABLET
     Route: 065
  29. GABAPENTIN [Concomitant]
     Active Substance: GABAPENTIN
     Indication: Product used for unknown indication
     Dosage: GABAPENTIN 300 MG CAPSULE
     Route: 065
  30. GABAPENTIN [Concomitant]
     Active Substance: GABAPENTIN
     Dosage: GABAPENTIN 100 MG CAPSULE
     Route: 065
  31. CALCIUM [Concomitant]
     Active Substance: CALCIUM
     Indication: Product used for unknown indication
     Dosage: CALCIUM 500(1250) TABLET
     Route: 065
  32. METFORMIN HYDROCHLORIDE [Concomitant]
     Active Substance: METFORMIN HYDROCHLORIDE
     Indication: Product used for unknown indication
     Dosage: METFORMIN HCL 500 MG TABLET, METFORMIN ER GASTRIC
     Route: 065
  33. DARZALEX FASPRO [Concomitant]
     Active Substance: DARATUMUMAB\HYALURONIDASE-FIHJ
     Indication: Product used for unknown indication
     Dosage: DARZALEX FASPRO 1800-30000 VIAL
     Route: 065
  34. DEXAMETHASONE [Concomitant]
     Active Substance: DEXAMETHASONE
     Indication: Product used for unknown indication
     Dosage: DEXAMETHASONE 4 MG TABLET
     Route: 065
  35. DEXAMETHASONE [Concomitant]
     Active Substance: DEXAMETHASONE
     Dosage: DEXAMETHASONE 0.75 MG TABLET
     Route: 065
  36. MUCINEX [Concomitant]
     Active Substance: GUAIFENESIN
     Indication: Product used for unknown indication
     Dosage: MUCINEX 600 MG TAB ER 12H
     Route: 065
  37. OXYGEN [Concomitant]
     Active Substance: OXYGEN
     Indication: Product used for unknown indication
     Route: 065
  38. ZYRTEC [Concomitant]
     Active Substance: CETIRIZINE HYDROCHLORIDE
     Indication: Product used for unknown indication
     Dosage: ZYRTEC 10 MG CAPSULE
     Route: 065
  39. VITAMINS [Concomitant]
     Active Substance: VITAMINS
     Indication: Product used for unknown indication
     Dosage: MULTIVITAMINS TABLET
     Route: 065
  40. FLONASE ALLERGY RELIEF [Concomitant]
     Active Substance: FLUTICASONE PROPIONATE
     Indication: Product used for unknown indication
     Route: 065
  41. PERCOCET [Concomitant]
     Active Substance: ACETAMINOPHEN\OXYCODONE HYDROCHLORIDE
     Indication: Product used for unknown indication
     Dosage: PERCOCET 7.5-325 MG TABLET
     Route: 065
  42. LEVOTHYROXINE SODIUM [Concomitant]
     Active Substance: LEVOTHYROXINE SODIUM
     Indication: Product used for unknown indication
     Dosage: LEVOTHYROXINE SODIUM 25 MCG TABLET
     Route: 065

REACTIONS (16)
  - Back pain [Unknown]
  - Pulmonary congestion [Unknown]
  - Productive cough [Unknown]
  - Feeling abnormal [Unknown]
  - Ear infection [Unknown]
  - Memory impairment [Unknown]
  - Nasal congestion [Unknown]
  - Oxygen saturation decreased [Unknown]
  - Oropharyngeal pain [Unknown]
  - Headache [Unknown]
  - Diarrhoea [Unknown]
  - Constipation [Unknown]
  - Weight decreased [Unknown]
  - Decreased appetite [Unknown]
  - Vaginal infection [Unknown]
  - Arthralgia [Unknown]
